FAERS Safety Report 17366805 (Version 1)
Quarter: 2020Q1

REPORT INFORMATION
  Report Type: Spontaneous
  Country: JP (occurrence: JP)
  Receive Date: 20200204
  Receipt Date: 20200204
  Transmission Date: 20200409
  Serious: Yes (Other)
  Sender: FDA-Public Use
  Company Number: NVSC2020JP027173

PATIENT
  Age: 46 Year
  Sex: Female

DRUGS (5)
  1. MAGNESIUM SULPHATE [Suspect]
     Active Substance: MAGNESIUM SULFATE
     Indication: PRODUCT USED FOR UNKNOWN INDICATION
     Dosage: 1 G, QH
     Route: 042
  2. RITODRINE [Suspect]
     Active Substance: RITODRINE
     Dosage: 133 UG/MIN
     Route: 065
  3. RITODRINE [Suspect]
     Active Substance: RITODRINE
     Indication: PRODUCT USED FOR UNKNOWN INDICATION
     Dosage: 100 UG/MIN
     Route: 042
  4. BETAMETHASONE. [Suspect]
     Active Substance: BETAMETHASONE
     Indication: PRODUCT USED FOR UNKNOWN INDICATION
     Dosage: 12 MG, QD
     Route: 065
  5. PHYSIOLOGICAL SALINE SOLUTION [Concomitant]
     Active Substance: SODIUM CHLORIDE
     Indication: PRODUCT USED FOR UNKNOWN INDICATION
     Dosage: 500 ML, Q2H
     Route: 041

REACTIONS (7)
  - Cardiac failure acute [Unknown]
  - Dyspnoea [Recovered/Resolved]
  - Pulmonary hypertension [Unknown]
  - Maternal exposure during pregnancy [Unknown]
  - Pulmonary oedema [Recovered/Resolved]
  - Drug ineffective [Unknown]
  - Premature delivery [Unknown]
